FAERS Safety Report 9343953 (Version 1)
Quarter: 2013Q2

REPORT INFORMATION
  Report Type: Spontaneous
  Country: FR (occurrence: FR)
  Receive Date: 20130612
  Receipt Date: 20130612
  Transmission Date: 20140414
  Serious: Yes (Disabling)
  Sender: FDA-Public Use
  Company Number: FR-ASTRAZENECA-2013SE41082

PATIENT
  Age: 62 Year
  Sex: Male

DRUGS (4)
  1. XEROQUEL [Suspect]
     Indication: BIPOLAR DISORDER
     Route: 048
     Dates: start: 201210
  2. XEROQUEL [Suspect]
     Indication: DRUG ABUSE
     Route: 048
     Dates: start: 201210
  3. ZOLPIDEM [Concomitant]
     Indication: INSOMNIA
  4. VALIUM [Concomitant]

REACTIONS (1)
  - Muscle rupture [Unknown]
